FAERS Safety Report 9640185 (Version 1)
Quarter: 2013Q4

REPORT INFORMATION
  Report Type: Spontaneous
  Country: US (occurrence: US)
  Receive Date: 20131023
  Receipt Date: 20131023
  Transmission Date: 20140711
  Serious: No
  Sender: FDA-Public Use
  Company Number: US-PFIZER INC-2013302139

PATIENT
  Age: 60 Year
  Sex: Female
  Weight: 74.83 kg

DRUGS (2)
  1. LYRICA [Suspect]
     Indication: NERVE COMPRESSION
     Dosage: 150 MG, 2X/DAY
     Route: 048
     Dates: start: 201203, end: 20131019
  2. HYDROCODONE [Concomitant]
     Dosage: UNK

REACTIONS (1)
  - Pain [Not Recovered/Not Resolved]
